FAERS Safety Report 23611539 (Version 1)
Quarter: 2024Q1

REPORT INFORMATION
  Report Type: Report from Study
  Country: US (occurrence: None)
  Receive Date: 20240308
  Receipt Date: 20240308
  Transmission Date: 20240410
  Serious: Yes (Hospitalization)
  Sender: FDA-Public Use
  Company Number: 2024A052049

PATIENT
  Sex: Female

DRUGS (1)
  1. TRUQAP [Suspect]
     Active Substance: CAPIVASERTIB
     Indication: Breast cancer female
     Dosage: 200MG 2 TABLETS TWICE DAILY 4 DAYS ON, 3 DAYS OFF
     Route: 048
     Dates: start: 20240113

REACTIONS (2)
  - Upper limb fracture [Unknown]
  - Rash [Unknown]
